FAERS Safety Report 4826231-4 (Version None)
Quarter: 2005Q4

REPORT INFORMATION
  Report Type: 
  Country: None (occurrence: None)
  Receive Date: 20051014
  Receipt Date: 20050729
  Transmission Date: 20060501
  Serious: No
  Sender: FDA-Public Use
  Company Number: 2005SP002134

PATIENT
  Age: 83 Year
  Sex: Female
  Weight: 45.3597 kg

DRUGS (3)
  1. LUNESTA [Suspect]
     Dosage: 1 MG;HS;ORAL; 1 MG;1X;ORAL;2 MG;HS;ORAL
     Route: 048
     Dates: start: 20050101, end: 20050101
  2. LUNESTA [Suspect]
     Dosage: 1 MG;HS;ORAL; 1 MG;1X;ORAL;2 MG;HS;ORAL
     Route: 048
     Dates: start: 20050727, end: 20050727
  3. LUNESTA [Suspect]
     Dosage: 1 MG;HS;ORAL; 1 MG;1X;ORAL;2 MG;HS;ORAL
     Route: 048
     Dates: start: 20050727

REACTIONS (3)
  - DRUG INEFFECTIVE [None]
  - DYSGEUSIA [None]
  - INSOMNIA [None]
